FAERS Safety Report 5941373-8 (Version None)
Quarter: 2008Q4

REPORT INFORMATION
  Report Type: 
  Country: None (occurrence: None)
  Receive Date: 20081105
  Receipt Date: 20081028
  Transmission Date: 20090506
  Serious: Yes (Other)
  Sender: FDA-Public Use
  Company Number: DE-JNJFOC-20081001283

PATIENT
  Age: 45 Year
  Sex: Female

DRUGS (2)
  1. TAVANIC [Suspect]
     Indication: CAMPYLOBACTER INFECTION
     Route: 048
  2. TAVANIC [Suspect]
     Indication: FOOD POISONING
     Dosage: FILM COATED TABLETS
     Route: 048

REACTIONS (4)
  - ARTHRALGIA [None]
  - FILARIASIS [None]
  - OEDEMA PERIPHERAL [None]
  - THROMBOSIS [None]
